FAERS Safety Report 8306940-5 (Version None)
Quarter: 2012Q2

REPORT INFORMATION
  Report Type: 
  Country: None (occurrence: None)
  Receive Date: 20120424
  Receipt Date: 20120417
  Transmission Date: 20120825
  Serious: Yes (Other)
  Sender: FDA-Public Use
  Company Number: DE-UCBSA-055447

PATIENT
  Age: 19 Year
  Sex: Male

DRUGS (2)
  1. VIMPAT [Concomitant]
  2. VIMPAT [Suspect]
     Dates: start: 20120414

REACTIONS (1)
  - CONVULSION [None]
